FAERS Safety Report 20604969 (Version 1)
Quarter: 2022Q1

REPORT INFORMATION
  Report Type: Spontaneous
  Country: AR (occurrence: AR)
  Receive Date: 20220317
  Receipt Date: 20220317
  Transmission Date: 20220423
  Serious: Yes (Other)
  Sender: FDA-Public Use
  Company Number: AR-PUMA BIOTECHNOLOGY, INC.-2022-PUM-AR000399

PATIENT

DRUGS (2)
  1. NERLYNX [Suspect]
     Active Substance: NERATINIB
     Indication: HER2 positive breast cancer
     Dosage: 240 MG, DAILY
     Route: 048
     Dates: start: 20211201
  2. LOPERAMIDE [Concomitant]
     Active Substance: LOPERAMIDE
     Indication: Prophylaxis against diarrhoea
     Dosage: 1 PILL EVERY 12 HOURS

REACTIONS (3)
  - Disease progression [Unknown]
  - Metastases to bone [Unknown]
  - Skin mass [Unknown]

NARRATIVE: CASE EVENT DATE: 20220101
